FAERS Safety Report 7350508-4 (Version None)
Quarter: 2011Q1

REPORT INFORMATION
  Report Type: 
  Country: None (occurrence: None)
  Receive Date: 20110314
  Receipt Date: 20110309
  Transmission Date: 20110831
  Serious: Yes (Death, Other)
  Sender: FDA-Public Use
  Company Number: US-PFIZER INC-2006117212

PATIENT
  Sex: Male

DRUGS (1)
  1. NEURONTIN [Suspect]
     Dosage: UNK
     Dates: start: 20000725, end: 20040825

REACTIONS (11)
  - PAIN [None]
  - PARANOIA [None]
  - DEPRESSION [None]
  - AGITATION [None]
  - COMPLETED SUICIDE [None]
  - AGGRESSION [None]
  - DRUG INEFFECTIVE [None]
  - INSOMNIA [None]
  - PSYCHOTIC DISORDER [None]
  - GUN SHOT WOUND [None]
  - CARDIAC ARREST [None]
